FAERS Safety Report 16149708 (Version 1)
Quarter: 2019Q2

REPORT INFORMATION
  Report Type: Report from Study
  Country: CO (occurrence: CO)
  Receive Date: 20190402
  Receipt Date: 20190402
  Transmission Date: 20190711
  Serious: Yes (Other)
  Sender: FDA-Public Use
  Company Number: CO-BRISTOL-MYERS SQUIBB COMPANY-BMS-2018-077320

PATIENT
  Age: 49 Year
  Sex: Female

DRUGS (1)
  1. ABATACEPT [Suspect]
     Active Substance: ABATACEPT
     Indication: RHEUMATOID ARTHRITIS
     Dosage: 125 MG, QWK
     Route: 058
     Dates: start: 20180222, end: 20190117

REACTIONS (7)
  - Skin disorder [Recovered/Resolved]
  - Skin discolouration [Not Recovered/Not Resolved]
  - Headache [Recovered/Resolved]
  - Wisdom teeth removal [Recovering/Resolving]
  - Dry skin [Recovered/Resolved]
  - Influenza [Not Recovered/Not Resolved]
  - Hypertension [Recovered/Resolved]

NARRATIVE: CASE EVENT DATE: 20180801
